FAERS Safety Report 20947359 (Version 1)
Quarter: 2022Q2

REPORT INFORMATION
  Report Type: Spontaneous
  Country: US (occurrence: US)
  Receive Date: 20220610
  Receipt Date: 20220610
  Transmission Date: 20220721
  Serious: No
  Sender: FDA-Public Use
  Company Number: US-IDORSIA-000513-2022-US

PATIENT
  Age: 66 Year
  Sex: Male

DRUGS (2)
  1. QUVIVIQ [Suspect]
     Active Substance: DARIDOREXANT
     Indication: Insomnia
     Dosage: 25 MG, QD (EVERY EVENING)
     Route: 048
     Dates: start: 20220528
  2. SERTRALINE [Concomitant]
     Active Substance: SERTRALINE HYDROCHLORIDE
     Dosage: 100 MG, ONCE EVERY MORNING
     Route: 048

REACTIONS (2)
  - Dysgeusia [Not Recovered/Not Resolved]
  - Drug ineffective [Unknown]

NARRATIVE: CASE EVENT DATE: 20220528
